FAERS Safety Report 11602584 (Version 1)
Quarter: 2015Q4

REPORT INFORMATION
  Report Type: Spontaneous
  Country: US (occurrence: US)
  Receive Date: 20151006
  Receipt Date: 20151006
  Transmission Date: 20160304
  Serious: No
  Sender: FDA-Public Use
  Company Number: US-AMGEN-USASP2015074701

PATIENT
  Sex: Female

DRUGS (1)
  1. PROLIA [Suspect]
     Active Substance: DENOSUMAB
     Indication: PRODUCT USED FOR UNKNOWN INDICATION
     Dosage: UNK, UNK
     Route: 065

REACTIONS (24)
  - Condition aggravated [Unknown]
  - Vomiting [Unknown]
  - Abdominal distension [Unknown]
  - Gait disturbance [Unknown]
  - Nausea [Unknown]
  - Pain in extremity [Unknown]
  - Renal disorder [Unknown]
  - Pain [Unknown]
  - Pyrexia [Unknown]
  - Feeling abnormal [Unknown]
  - Abdominal pain [Unknown]
  - Adverse drug reaction [Unknown]
  - Hot flush [Unknown]
  - Renal pain [Unknown]
  - Endocrine disorder [Unknown]
  - Skin discolouration [Unknown]
  - Headache [Unknown]
  - Urethral pain [Unknown]
  - Sweat gland disorder [Unknown]
  - Off label use [Unknown]
  - Bone pain [Unknown]
  - Musculoskeletal stiffness [Unknown]
  - Cardiac disorder [Unknown]
  - Neck pain [Unknown]
